FAERS Safety Report 9059708 (Version 3)
Quarter: 2013Q2

REPORT INFORMATION
  Report Type: Spontaneous
  Country: US (occurrence: US)
  Receive Date: 20130211
  Receipt Date: 20130430
  Transmission Date: 20140414
  Serious: Yes (Other)
  Sender: FDA-Public Use
  Company Number: US-ALLERGAN-1301691US

PATIENT
  Age: 44 Year
  Sex: Female

DRUGS (6)
  1. BOTOX COSMETIC [Suspect]
     Indication: PSYCHOMOTOR HYPERACTIVITY
     Dosage: 20 UNITS, SINGLE
     Route: 030
     Dates: start: 20130119, end: 20130119
  2. BOTOX COSMETIC [Suspect]
     Dosage: 20 UNITS, SINGLE
     Dates: start: 20120229, end: 20120229
  3. BOTOX COSMETIC [Suspect]
     Dosage: UNK
     Dates: start: 20111117, end: 20111117
  4. BOTOX COSMETIC [Suspect]
     Dosage: UNK
     Dates: start: 20110621, end: 20110621
  5. BOTOX COSMETIC [Suspect]
     Dosage: UNK
     Dates: start: 20110728, end: 20110728
  6. Z-PAK [Concomitant]
     Indication: NASOPHARYNGITIS
     Route: 048

REACTIONS (2)
  - Deafness neurosensory [Recovering/Resolving]
  - Tinnitus [Recovered/Resolved]
